FAERS Safety Report 25601020 (Version 2)
Quarter: 2025Q3

REPORT INFORMATION
  Report Type: Spontaneous
  Country: JP (occurrence: JP)
  Receive Date: 20250724
  Receipt Date: 20250820
  Transmission Date: 20251020
  Serious: Yes (Other)
  Sender: UCB
  Company Number: JP-UCBJ-CD202508851UCBPHAPROD

PATIENT
  Age: 10 Month
  Sex: Female

DRUGS (2)
  1. LEVETIRACETAM [Suspect]
     Active Substance: LEVETIRACETAM
     Indication: Epilepsy
     Route: 048
  2. DESMOPRESSIN [Concomitant]
     Active Substance: DESMOPRESSIN
     Indication: Diabetes insipidus
     Route: 060

REACTIONS (4)
  - Seizure [Unknown]
  - Inappropriate antidiuretic hormone secretion [Unknown]
  - Blood sodium decreased [Unknown]
  - Off label use [Unknown]
